FAERS Safety Report 23184425 (Version 1)
Quarter: 2023Q4

REPORT INFORMATION
  Report Type: Spontaneous
  Country: CN (occurrence: None)
  Receive Date: 20231115
  Receipt Date: 20231115
  Transmission Date: 20240109
  Serious: Yes (Hospitalization)
  Sender: FDA-Public Use
  Company Number: CN-ROCHE-3455209

PATIENT
  Age: 66 Year
  Sex: Female

DRUGS (1)
  1. HERCEPTIN [Suspect]
     Active Substance: TRASTUZUMAB
     Indication: Breast cancer
     Route: 041
     Dates: start: 20231027, end: 20231027

REACTIONS (2)
  - Platelet count decreased [Recovering/Resolving]
  - Ammonia increased [Recovering/Resolving]

NARRATIVE: CASE EVENT DATE: 20231027
